FAERS Safety Report 25348757 (Version 5)
Quarter: 2025Q4

REPORT INFORMATION
  Report Type: Report from Study
  Country: CA (occurrence: CA)
  Receive Date: 20250522
  Receipt Date: 20251018
  Transmission Date: 20260117
  Serious: Yes (Hospitalization, Other)
  Sender: AUROBINDO
  Company Number: CA-AUROBINDO-AUR-APL-2025-025341

PATIENT
  Age: 66 Year
  Sex: Female

DRUGS (68)
  1. BELINOSTAT [Suspect]
     Active Substance: BELINOSTAT
     Indication: Peripheral T-cell lymphoma unspecified stage IV
     Dosage: 1000 MILLIGRAM/SQ. METER, DAILY(FROM DAY 1 - DAY 5 OF 21 DAYS CYCLE)
     Route: 042
     Dates: start: 20250428
  2. BELINOSTAT [Suspect]
     Active Substance: BELINOSTAT
     Dosage: 1000 MILLIGRAM/SQ. METER, DAILY(FROM DAY 2- DAY 5 OF 21 DAYS CYCLE)
     Route: 042
     Dates: start: 20250429
  3. BELINOSTAT [Suspect]
     Active Substance: BELINOSTAT
     Dosage: 1000 MILLIGRAM/SQ. METER, DAILY(FROM DAY 1 - DAY 5 OF 21 DAYS CYCLE)
     Route: 042
     Dates: start: 20250430
  4. BELINOSTAT [Suspect]
     Active Substance: BELINOSTAT
     Dosage: 1000 MILLIGRAM/SQ. METER, DAILY(FROM DAY 1 - DAY 5 OF 21 DAYS CYCLE)
     Route: 042
     Dates: start: 20250501
  5. BELINOSTAT [Suspect]
     Active Substance: BELINOSTAT
     Dosage: 1000 MILLIGRAM/SQ. METER, DAILY(FROM DAY 1 - DAY 5 OF 21 DAYS CYCLE)
     Route: 042
     Dates: start: 20250502, end: 20250502
  6. BELINOSTAT [Suspect]
     Active Substance: BELINOSTAT
     Dosage: 750 MILLIGRAM/SQ. METER (CYCLE 2 DAY 1)
     Route: 042
     Dates: start: 20250520, end: 20250520
  7. BELINOSTAT [Suspect]
     Active Substance: BELINOSTAT
     Dosage: 750 MILLIGRAM/SQ. METER (CYCLE 2 DAY 2)
     Route: 042
     Dates: start: 20250521, end: 20250521
  8. BELINOSTAT [Suspect]
     Active Substance: BELINOSTAT
     Dosage: 750 MILLIGRAM/SQ. METER (CYCLE 2 DAY 3)
     Route: 042
     Dates: start: 20250522, end: 20250522
  9. BELINOSTAT [Suspect]
     Active Substance: BELINOSTAT
     Dosage: 750 MILLIGRAM/SQ. METER (CYCLE 2 DAY 4)
     Route: 042
     Dates: start: 20250523, end: 20250523
  10. BELINOSTAT [Suspect]
     Active Substance: BELINOSTAT
     Dosage: 750 MILLIGRAM/SQ. METER (CYCLE 2 DAY 5)
     Route: 042
     Dates: start: 20250526, end: 20250526
  11. BELINOSTAT [Suspect]
     Active Substance: BELINOSTAT
     Dosage: 750 MILLIGRAM/SQ. METER (CYCLE 3 DAY 1)
     Route: 042
     Dates: start: 20250623, end: 20250623
  12. BELINOSTAT [Suspect]
     Active Substance: BELINOSTAT
     Dosage: 562.5 MILLIGRAM/SQ. METER (CYCLE 3 DAY 2)
     Route: 042
     Dates: start: 20250624, end: 20250624
  13. BELINOSTAT [Suspect]
     Active Substance: BELINOSTAT
     Dosage: 562.5 MILLIGRAM/SQ. METER (CYCLE 3 DAY 3)
     Route: 042
     Dates: start: 20250625, end: 20250625
  14. BELINOSTAT [Suspect]
     Active Substance: BELINOSTAT
     Dosage: 562.5 MILLIGRAM/SQ. METER (CYCLE 3 DAY 4)
     Route: 042
     Dates: start: 20250626, end: 20250626
  15. BELINOSTAT [Suspect]
     Active Substance: BELINOSTAT
     Dosage: 562.5 MILLIGRAM/SQ. METER (CYCLE 3 DAY 4)
     Route: 042
     Dates: start: 20250627, end: 20250627
  16. BELINOSTAT [Suspect]
     Active Substance: BELINOSTAT
     Dosage: 450 MILLIGRAM/SQ. METER (CYCLE 4 DAY 1 )
     Route: 042
     Dates: start: 20250714, end: 20250714
  17. BELINOSTAT [Suspect]
     Active Substance: BELINOSTAT
     Dosage: 450 MILLIGRAM/SQ. METER (CYCLE 4 DAY 2 )
     Route: 042
     Dates: start: 20250715, end: 20250715
  18. BELINOSTAT [Suspect]
     Active Substance: BELINOSTAT
     Dosage: 450 MILLIGRAM/SQ. METER (CYCLE 4 DAY 3)
     Route: 042
     Dates: start: 20250716, end: 20250716
  19. BELINOSTAT [Suspect]
     Active Substance: BELINOSTAT
     Dosage: 450 MILLIGRAM/SQ. METER (CYCLE 4 DAY 3)
     Route: 042
     Dates: start: 20250717, end: 20250717
  20. BELINOSTAT [Suspect]
     Active Substance: BELINOSTAT
     Dosage: 450 MILLIGRAM/SQ. METER (CYCLE 4 DAY 5)
     Route: 042
     Dates: start: 20250718, end: 20250718
  21. PREDNISONE [Suspect]
     Active Substance: PREDNISONE
     Indication: Peripheral T-cell lymphoma unspecified stage IV
     Dosage: 100 MILLIGRAM ( FROM DAY 1 - DAY 5 OF 21 DAYS CYCLE)
     Route: 048
     Dates: start: 20250428
  22. PREDNISONE [Suspect]
     Active Substance: PREDNISONE
     Dosage: 100 MILLIGRAM ( FROM DAY 1 - DAY 5 OF 21 DAYS CYCLE)
     Route: 048
     Dates: start: 20250428
  23. PREDNISONE [Suspect]
     Active Substance: PREDNISONE
     Dosage: 100 MILLIGRAM ( FROM DAY 1 - DAY 5 OF 21 DAYS CYCLE)
     Route: 048
     Dates: start: 20250430
  24. PREDNISONE [Suspect]
     Active Substance: PREDNISONE
     Dosage: 100 MILLIGRAM ( FROM DAY 1 - DAY 5 OF 21 DAYS CYCLE)
     Route: 048
     Dates: start: 20250501
  25. PREDNISONE [Suspect]
     Active Substance: PREDNISONE
     Dosage: 100 MILLIGRAM ( FROM DAY 1 - DAY 5 OF 21 DAYS CYCLE)
     Route: 048
     Dates: start: 20250502
  26. PREDNISONE [Suspect]
     Active Substance: PREDNISONE
     Dosage: 100 MILLIGRAM CYCLE 2 DAY 1
     Route: 048
     Dates: start: 20250520
  27. PREDNISONE [Suspect]
     Active Substance: PREDNISONE
     Dosage: 100 MILLIGRAM CYCLE 2 DAY 2
     Route: 048
     Dates: start: 20250521
  28. PREDNISONE [Suspect]
     Active Substance: PREDNISONE
     Dosage: 100 MILLIGRAM CYCLE 2 DAY 3
     Route: 048
     Dates: start: 20250522
  29. PREDNISONE [Suspect]
     Active Substance: PREDNISONE
     Dosage: 100 MILLIGRAM CYCLE 2 DAY 4
     Route: 048
     Dates: start: 20250523
  30. PREDNISONE [Suspect]
     Active Substance: PREDNISONE
     Dosage: 100 MILLIGRAM CYCLE 2 DAY 5
     Route: 048
     Dates: start: 20250526
  31. PREDNISONE [Suspect]
     Active Substance: PREDNISONE
     Dosage: 100 MILLIGRAM CYCLE 3 DAY 1
     Route: 048
     Dates: start: 20250623, end: 20250623
  32. PREDNISONE [Suspect]
     Active Substance: PREDNISONE
     Dosage: 100 MILLIGRAM CYCLE 3 DAY 2
     Route: 048
     Dates: start: 20250624, end: 20250624
  33. PREDNISONE [Suspect]
     Active Substance: PREDNISONE
     Dosage: 100 MILLIGRAM CYCLE 3 DAY 3
     Route: 048
     Dates: start: 20250625, end: 20250625
  34. PREDNISONE [Suspect]
     Active Substance: PREDNISONE
     Dosage: 100 MILLIGRAM CYCLE 3 DAY 3
     Route: 048
     Dates: start: 20250626, end: 20250626
  35. PREDNISONE [Suspect]
     Active Substance: PREDNISONE
     Dosage: 100 MILLIGRAMCYCLE 4 DAY 1
     Route: 048
     Dates: start: 20250627, end: 20250627
  36. PREDNISONE [Suspect]
     Active Substance: PREDNISONE
     Dosage: 100 MILLIGRAM CYCLE 4 DAY 2
     Route: 048
     Dates: start: 20250715, end: 20250715
  37. PREDNISONE [Suspect]
     Active Substance: PREDNISONE
     Dosage: 100 MILLIGRAM CYCLE 4 DAY 3
     Route: 048
     Dates: start: 20250716, end: 20250716
  38. PREDNISONE [Suspect]
     Active Substance: PREDNISONE
     Dosage: 100 MILLIGRAM CYCLE 4 DAY 4
     Route: 048
     Dates: start: 20250717, end: 20250717
  39. PREDNISONE [Suspect]
     Active Substance: PREDNISONE
     Dosage: 100 MILLIGRAM CYCLE 4 DAY 4
     Route: 048
     Dates: start: 20250718, end: 20250718
  40. PREDNISONE [Suspect]
     Active Substance: PREDNISONE
     Dosage: 100 MILLIGRAM CYCLE 4 DAY 5
     Route: 048
     Dates: start: 20250718
  41. CYCLOPHOSPHAMIDE [Suspect]
     Active Substance: CYCLOPHOSPHAMIDE
     Indication: Peripheral T-cell lymphoma unspecified stage IV
     Dosage: 750 MILLIGRAM/SQ. METER
     Route: 042
     Dates: start: 20250428, end: 20250428
  42. CYCLOPHOSPHAMIDE [Suspect]
     Active Substance: CYCLOPHOSPHAMIDE
     Dosage: 750 MILLIGRAM/SQ. METER
     Route: 042
     Dates: start: 20250520, end: 20250520
  43. CYCLOPHOSPHAMIDE [Suspect]
     Active Substance: CYCLOPHOSPHAMIDE
     Dosage: 750 MILLIGRAM/SQ. METER
     Route: 042
     Dates: start: 20250714, end: 20250714
  44. DOXORUBICIN [Suspect]
     Active Substance: DOXORUBICIN
     Indication: Peripheral T-cell lymphoma unspecified stage IV
     Dosage: 50 MILLIGRAM/SQ. METER
     Route: 042
     Dates: start: 20250428, end: 20250520
  45. DOXORUBICIN [Suspect]
     Active Substance: DOXORUBICIN
     Dosage: 50 MILLIGRAM/SQ. METER
     Route: 042
     Dates: start: 20250520, end: 20250520
  46. DOXORUBICIN [Suspect]
     Active Substance: DOXORUBICIN
     Dosage: 50 MILLIGRAM/SQ. METER
     Route: 042
     Dates: start: 20250714
  47. ONCOVIN [Suspect]
     Active Substance: VINCRISTINE SULFATE
     Indication: Peripheral T-cell lymphoma unspecified stage IV
     Dosage: 1.4 MILLIGRAM/SQ. METER
     Route: 065
     Dates: start: 20250428, end: 20250428
  48. ONCOVIN [Suspect]
     Active Substance: VINCRISTINE SULFATE
     Dosage: 1.4 MILLIGRAM/SQ. METER
     Route: 065
     Dates: start: 20250520, end: 20250520
  49. ONCOVIN [Suspect]
     Active Substance: VINCRISTINE SULFATE
     Dosage: 1.4 MILLIGRAM/SQ. METER
     Route: 065
     Dates: start: 20250714
  50. TRAZODONE [Concomitant]
     Active Substance: TRAZODONE HYDROCHLORIDE
     Indication: Product used for unknown indication
     Dosage: 50 MILLIGRAM, DAILY
     Route: 048
     Dates: start: 202408, end: 20250516
  51. CHOLESTYRAMINE [Concomitant]
     Active Substance: CHOLESTYRAMINE
     Indication: Product used for unknown indication
     Dosage: 4 GRAM, 3 TIMES A DAY
     Route: 048
     Dates: start: 202408
  52. VITAMIN D3 [Concomitant]
     Active Substance: CHOLECALCIFEROL
     Indication: Product used for unknown indication
     Dosage: 1000 INTERNATIONAL UNIT, DAILY
     Route: 048
     Dates: start: 202409
  53. FOLIC ACID [Concomitant]
     Active Substance: FOLIC ACID
     Indication: Product used for unknown indication
     Dosage: 1 MILLIGRAM, DAILY
     Route: 048
     Dates: start: 20250417
  54. DIMENHYDRINATE [Concomitant]
     Active Substance: DIMENHYDRINATE
     Indication: Product used for unknown indication
     Dosage: UNK
     Route: 065
     Dates: start: 20250429
  55. PROCHLORPERAZINE [Concomitant]
     Active Substance: PROCHLORPERAZINE
     Indication: Nausea
     Dosage: UNK
     Route: 048
     Dates: start: 20250225
  56. PROCHLORPERAZINE [Concomitant]
     Active Substance: PROCHLORPERAZINE
     Dosage: 10 MILLIGRAM, Q4HRS PRN
     Route: 048
     Dates: start: 20250425
  57. ALLOPURINOL [Concomitant]
     Active Substance: ALLOPURINOL
     Indication: Blood uric acid
     Dosage: 300 MILLIGRAM, DAILY
     Route: 048
     Dates: start: 20250425, end: 20250502
  58. ALLOPURINOL [Concomitant]
     Active Substance: ALLOPURINOL
     Indication: Blood uric acid decreased
     Dosage: 300 MILLIGRAM, DAILY
     Route: 048
     Dates: start: 20250504, end: 20250504
  59. TYLENOL [Concomitant]
     Active Substance: ACETAMINOPHEN
     Indication: Pain
     Dosage: 650 MILLIGRAM, Q4HRS PRN
     Route: 065
     Dates: start: 20250430, end: 20250504
  60. TYLENOL [Concomitant]
     Active Substance: ACETAMINOPHEN
     Indication: Pyrexia
  61. POLYETHYLENE GLYCOL [Concomitant]
     Active Substance: POLYETHYLENE GLYCOL
     Indication: Product used for unknown indication
     Dosage: 17 GRAM, DAILY
     Route: 048
     Dates: start: 20250430
  62. PEGFILGRASTIM [Concomitant]
     Active Substance: PEGFILGRASTIM
     Indication: Neutropenia
     Dosage: 6 MILLIGRAM, DAILY
     Route: 058
     Dates: start: 20250405, end: 20250505
  63. SENNA LEAF [Concomitant]
     Active Substance: SENNA LEAF
     Indication: Product used for unknown indication
     Dosage: 17.2 MILLIGRAM, DAILY
     Route: 048
     Dates: start: 20250430
  64. B12 [Concomitant]
     Indication: Vitamin supplementation
     Dosage: 1 MILLIGRAM,  EVERY MONTH
     Route: 065
     Dates: start: 20250417
  65. LORATADINE [Concomitant]
     Active Substance: LORATADINE
     Indication: Product used for unknown indication
     Dosage: 10 MILLIGRAM, TWICE DAILY PRN
     Route: 048
     Dates: start: 20250504
  66. MIRTAZAPINE [Concomitant]
     Active Substance: MIRTAZAPINE
     Indication: Product used for unknown indication
     Dosage: 30 MILLIGRAM, DAILY
     Route: 048
     Dates: start: 20250516
  67. TRAZODONE [Concomitant]
     Active Substance: TRAZODONE HYDROCHLORIDE
     Indication: Insomnia
     Dosage: 50 MILLIGRAM, ONCE A DAY
     Route: 048
     Dates: start: 202408, end: 20250516
  68. MOXIFLOXACIN [Concomitant]
     Active Substance: MOXIFLOXACIN
     Indication: Pyrexia
     Dosage: 400 MILLIGRAM, ONCE A DAY
     Route: 048
     Dates: start: 20250606, end: 20250612

REACTIONS (18)
  - Hypotension [Recovered/Resolved]
  - Pyrexia [Recovered/Resolved]
  - Anaemia [Not Recovered/Not Resolved]
  - Platelet count decreased [Recovering/Resolving]
  - Neutrophil count decreased [Recovering/Resolving]
  - Nausea [Not Recovered/Not Resolved]
  - Constipation [Recovered/Resolved]
  - Dry mouth [Not Recovered/Not Resolved]
  - Decreased appetite [Not Recovered/Not Resolved]
  - Dysgeusia [Not Recovered/Not Resolved]
  - Neuropathy peripheral [Not Recovered/Not Resolved]
  - Vision blurred [Not Recovered/Not Resolved]
  - Dyspnoea [Not Recovered/Not Resolved]
  - Fatigue [Not Recovered/Not Resolved]
  - Sneezing [Recovering/Resolving]
  - Vomiting [Recovering/Resolving]
  - Nervousness [Recovered/Resolved]
  - Tachycardia [Recovered/Resolved]

NARRATIVE: CASE EVENT DATE: 20250428
